FAERS Safety Report 6492281-8 (Version None)
Quarter: 2009Q4

REPORT INFORMATION
  Report Type: 
  Country: None (occurrence: None)
  Receive Date: 20091214
  Receipt Date: 20091210
  Transmission Date: 20100525
  Serious: Yes (Death)
  Sender: FDA-Public Use
  Company Number: PHHY2009JP47134

PATIENT
  Sex: Female

DRUGS (10)
  1. DIOVAN [Suspect]
     Indication: HYPERTENSION
     Dosage: 80 MG, BID
     Route: 048
     Dates: start: 20070918
  2. NATRIX [Concomitant]
     Indication: HYPERTENSION
     Dosage: 1 MG, UNK
     Route: 048
     Dates: start: 20070913
  3. ATELEC [Concomitant]
     Indication: HYPERTENSION
     Dosage: 20 MG, UNK
     Route: 048
     Dates: start: 20060405
  4. NU-LOTAN [Concomitant]
     Indication: HYPERTENSION
     Dosage: 50 MG, UNK
     Route: 048
     Dates: start: 20070424, end: 20070912
  5. FLUITRAN [Concomitant]
     Indication: HYPERTENSION
     Dosage: 1 MG, UNK
     Route: 048
     Dates: start: 20070807, end: 20070912
  6. GASTER D [Concomitant]
     Dosage: 40 MG, UNK
     Route: 048
  7. AMOBAN [Concomitant]
     Dosage: 1 DF, UNK
     Route: 048
  8. SAWADOL [Concomitant]
     Dosage: 1 DF, UNK
     Route: 062
  9. LOXONIN [Concomitant]
     Dosage: 2 DF, UNK
     Route: 048
  10. MARZULENE S [Concomitant]
     Dosage: 2 G, UNK
     Route: 048

REACTIONS (1)
  - CARDIAC FAILURE CONGESTIVE [None]
